FAERS Safety Report 18297447 (Version 2)
Quarter: 2020Q4

REPORT INFORMATION
  Report Type: Spontaneous
  Country: US (occurrence: US)
  Receive Date: 20200922
  Receipt Date: 20201005
  Transmission Date: 20210113
  Serious: Yes (Other)
  Sender: FDA-Public Use
  Company Number: US-MYLANLABS-2020M1079816

PATIENT
  Age: 81 Year
  Sex: Female
  Weight: 83.9 kg

DRUGS (6)
  1. BUMEX [Concomitant]
     Active Substance: BUMETANIDE
     Dosage: UNK
  2. TREPROSTINIL. [Suspect]
     Active Substance: TREPROSTINIL
     Indication: PULMONARY ARTERIAL HYPERTENSION
     Dosage: 2 MILLIGRAM, Q8H
     Route: 048
     Dates: start: 20171027
  3. ORENITRAM [Suspect]
     Active Substance: TREPROSTINIL
     Dosage: UNK
     Route: 048
  4. DILTIAZEM. [Suspect]
     Active Substance: DILTIAZEM
     Indication: PRODUCT USED FOR UNKNOWN INDICATION
     Dosage: UNK
     Route: 065
  5. ORENITRAM [Suspect]
     Active Substance: TREPROSTINIL
     Indication: PULMONARY ARTERIAL HYPERTENSION
     Dosage: 1 MILLIGRAM, Q8H
     Route: 048
     Dates: start: 20171027
  6. ADEMPAS [Suspect]
     Active Substance: RIOCIGUAT
     Indication: PRODUCT USED FOR UNKNOWN INDICATION
     Dosage: UNK
     Route: 065

REACTIONS (10)
  - Oxygen saturation abnormal [Unknown]
  - Oedema peripheral [Recovering/Resolving]
  - Weight increased [Unknown]
  - Gastrointestinal haemorrhage [Unknown]
  - Flatulence [Unknown]
  - Fluid retention [Unknown]
  - Anaemia [Unknown]
  - Headache [Unknown]
  - Dyspepsia [Unknown]
  - Dyspnoea [Not Recovered/Not Resolved]

NARRATIVE: CASE EVENT DATE: 202006
